FAERS Safety Report 14495951 (Version 1)
Quarter: 2018Q1

REPORT INFORMATION
  Report Type: Spontaneous
  Country: TN (occurrence: TN)
  Receive Date: 20180207
  Receipt Date: 20180207
  Transmission Date: 20180509
  Serious: Yes (Other)
  Sender: FDA-Public Use
  Company Number: TN-ACCORD-063169

PATIENT
  Age: 68 Year
  Sex: Female

DRUGS (3)
  1. FOLATE SODIUM/FOLIC ACID [Concomitant]
     Indication: RHEUMATOID ARTHRITIS
  2. PREDNISONE. [Concomitant]
     Active Substance: PREDNISONE
     Indication: RHEUMATOID ARTHRITIS
     Route: 048
  3. METHOTREXATE. [Suspect]
     Active Substance: METHOTREXATE
     Indication: RHEUMATOID ARTHRITIS
     Dosage: SHIFTED TO THE INJECTION ROUTE
     Route: 048
     Dates: start: 2005, end: 2014

REACTIONS (3)
  - Skin toxicity [Recovered/Resolved]
  - Drug intolerance [Unknown]
  - Gastric disorder [Unknown]

NARRATIVE: CASE EVENT DATE: 2014
